FAERS Safety Report 14287131 (Version 2)
Quarter: 2018Q2

REPORT INFORMATION
  Report Type: Spontaneous
  Country: US (occurrence: US)
  Receive Date: 20171214
  Receipt Date: 20180416
  Transmission Date: 20180711
  Serious: Yes (Hospitalization, Other)
  Sender: FDA-Public Use
  Company Number: US-SA-2017SA246196

PATIENT
  Age: 40 Year
  Sex: Female
  Weight: 101.6 kg

DRUGS (6)
  1. RANITIDINE. [Concomitant]
     Active Substance: RANITIDINE
     Indication: DYSPEPSIA
     Route: 065
  2. DIPHENHYDRAMINE. [Concomitant]
     Active Substance: DIPHENHYDRAMINE
     Indication: PRURITUS
     Route: 065
     Dates: start: 20160801, end: 20160801
  3. IBUPROFEN. [Concomitant]
     Active Substance: IBUPROFEN
     Indication: PAIN
     Route: 065
  4. PROMETHAZINE [Concomitant]
     Active Substance: PROMETHAZINE\PROMETHAZINE HYDROCHLORIDE
     Indication: NAUSEA
     Route: 065
  5. HYDROXYZINE [Concomitant]
     Active Substance: HYDROXYZINE HYDROCHLORIDE
     Indication: PRURITUS
     Route: 065
  6. LEMTRADA [Suspect]
     Active Substance: ALEMTUZUMAB
     Indication: MULTIPLE SCLEROSIS
     Route: 041
     Dates: start: 20160801, end: 20160801

REACTIONS (29)
  - Acute kidney injury [Not Recovered/Not Resolved]
  - Hypomagnesaemia [Recovered/Resolved]
  - Hypoxia [Recovered/Resolved]
  - Vomiting [Recovered/Resolved]
  - Reticulocyte percentage increased [Unknown]
  - Haemoglobin decreased [Unknown]
  - Major depression [Not Recovered/Not Resolved]
  - Renal cortical necrosis [Not Recovered/Not Resolved]
  - Cardiomyopathy [Recovered/Resolved]
  - Platelet count decreased [Unknown]
  - Anaemia [Not Recovered/Not Resolved]
  - Blood glucose increased [Unknown]
  - Hypotension [Recovered/Resolved]
  - Blood urea increased [Unknown]
  - Renal tubular necrosis [Unknown]
  - Azotaemia [Unknown]
  - Haemorrhagic anaemia [Not Recovered/Not Resolved]
  - Abdominal pain [Recovered/Resolved]
  - Lymphocyte count decreased [Unknown]
  - Hyperphosphataemia [Not Recovered/Not Resolved]
  - Blood lactate dehydrogenase increased [Unknown]
  - Nausea [Recovered/Resolved]
  - Red cell distribution width increased [Unknown]
  - Blood calcium decreased [Unknown]
  - Blood creatine increased [Unknown]
  - Thrombotic microangiopathy [Not Recovered/Not Resolved]
  - Hyperhidrosis [Recovered/Resolved]
  - Red blood cell count decreased [Unknown]
  - Haematocrit decreased [Unknown]

NARRATIVE: CASE EVENT DATE: 20160801
